FAERS Safety Report 4462602-6 (Version None)
Quarter: 2004Q3

REPORT INFORMATION
  Report Type: 
  Country: None (occurrence: None)
  Receive Date: 20040928
  Receipt Date: 20040913
  Transmission Date: 20050211
  Serious: Yes (Hospitalization, Other)
  Sender: FDA-Public Use
  Company Number: 2004050030

PATIENT
  Age: 69 Year
  Sex: Female
  Weight: 80 kg

DRUGS (5)
  1. CARDULA PP (DOXAZOSIN) [Suspect]
     Indication: HYPERTENSION
     Dosage: 4 MG (4 MG, 1 IN 1 D), ORAL
     Route: 048
     Dates: start: 20010101
  2. GEZOR (HYDROCHLOROTHIAZIDE, QUINAPRIL HYDROCHLORIDE) [Concomitant]
  3. BISOPROLOL FUMARATE [Concomitant]
  4. METOCLOPRAMIDE [Concomitant]
  5. OXAZEPAM [Concomitant]

REACTIONS (8)
  - ABSCESS [None]
  - DIVERTICULITIS [None]
  - FOREIGN BODY TRAUMA [None]
  - INTESTINAL PERFORATION [None]
  - OVARIAN CYST [None]
  - PERITONITIS [None]
  - PHARMACEUTICAL PRODUCT COMPLAINT [None]
  - UTERINE LEIOMYOMA [None]
